FAERS Safety Report 9849335 (Version 3)
Quarter: 2014Q2

REPORT INFORMATION
  Report Type: Report from Study
  Country: JP (occurrence: JP)
  Receive Date: 20140128
  Receipt Date: 20140529
  Transmission Date: 20141212
  Serious: Yes (Hospitalization)
  Sender: FDA-Public Use
  Company Number: JP-NOVOPROD-398659

PATIENT
  Age: 27 Year
  Sex: Male
  Weight: 94.3 kg

DRUGS (7)
  1. NORDITROPIN FLEXPRO 3.3 MG/ML [Suspect]
     Indication: GROWTH HORMONE DEFICIENCY
     Dosage: UNK
     Route: 058
     Dates: start: 20110802
  2. CORTRIL                            /00028601/ [Concomitant]
     Indication: HYPOPITUITARISM
     Dosage: 15 MG, QD
     Route: 048
  3. THYRADIN S [Concomitant]
     Indication: HYPOPITUITARISM
     Dosage: 150 ?G, QD
     Route: 048
     Dates: start: 20100716
  4. DESMOPRESSIN [Concomitant]
     Indication: HYPOPITUITARISM
     Dosage: 10 ?G, QD
     Route: 045
     Dates: start: 20100706
  5. PROHEPARUM [Concomitant]
     Indication: LIVER DISORDER
     Dosage: UNK
     Route: 048
     Dates: start: 20101214
  6. URSO                               /00465701/ [Concomitant]
     Indication: LIVER DISORDER
     Dosage: 600 MG, QD
     Route: 048
     Dates: start: 20100723
  7. LIVALO [Concomitant]
     Indication: HYPERLIPIDAEMIA
     Dosage: 2 MG, QD
     Route: 048
     Dates: start: 20120501

REACTIONS (2)
  - Craniopharyngioma [Recovered/Resolved]
  - Neoplasm recurrence [Recovered/Resolved]
